FAERS Safety Report 8518647 (Version 2)
Quarter: 2012Q4

REPORT INFORMATION
  Report Type: 
  Country: US (occurrence: US)
  Receive Date: 20120417
  Receipt Date: 20120925
  Transmission Date: 20130627
  Serious: No
  Sender: FDA-Public Use
  Company Number: US-ASTRAZENECA-2011SE52052

PATIENT
  Age: 39 Year
  Sex: Female

DRUGS (5)
  1. NEXIUM [Suspect]
     Route: 048
     Dates: start: 20100325
  2. TOPROL XL [Suspect]
     Route: 048
     Dates: start: 20100813
  3. WELLBUTRIN SR [Concomitant]
  4. MULTIVITAMINS [Concomitant]
  5. BACTRIM DS [Concomitant]

REACTIONS (3)
  - Gastrooesophageal reflux disease [Not Recovered/Not Resolved]
  - Ulcer [Unknown]
  - Abdominal discomfort [Unknown]
